FAERS Safety Report 20060893 (Version 3)
Quarter: 2021Q4

REPORT INFORMATION
  Report Type: Report from Study
  Country: DE (occurrence: DE)
  Receive Date: 20211112
  Receipt Date: 20211201
  Transmission Date: 20220304
  Serious: Yes (Hospitalization)
  Sender: FDA-Public Use
  Company Number: DE-CELLTRION INC.-2021DE015146

PATIENT

DRUGS (4)
  1. TRUXIMA [Suspect]
     Active Substance: RITUXIMAB-ABBS
     Indication: Marginal zone lymphoma
     Dosage: 724 MG, ONCE EVERY 4 WEEKS, CYCLE 2 DAYS 8 AND 15
     Route: 042
     Dates: start: 20210915, end: 20211013
  2. COPANLISIB [Suspect]
     Active Substance: COPANLISIB
     Indication: Marginal zone lymphoma
     Dosage: 60 MG, ONCE PER WEEK
     Route: 042
     Dates: start: 20210915, end: 20211013
  3. CO-TRIMOXAZOLE/COTRIM FORTE [Concomitant]
     Indication: Prophylaxis
     Dosage: 960 MG, ONCE DAILY
     Route: 048
     Dates: start: 20210915
  4. ACYCLOVIR [Concomitant]
     Active Substance: ACYCLOVIR
     Indication: Prophylaxis
     Dosage: 400 MG, ONCE DAILY
     Route: 048
     Dates: start: 20210915

REACTIONS (4)
  - Cholestasis [Recovered/Resolved]
  - Bile duct stone [Recovered/Resolved]
  - Cholestasis [Recovered/Resolved]
  - Off label use [Unknown]

NARRATIVE: CASE EVENT DATE: 20211104
